FAERS Safety Report 12884965 (Version 3)
Quarter: 2017Q1

REPORT INFORMATION
  Report Type: Report from Study
  Country: US (occurrence: US)
  Receive Date: 20161026
  Receipt Date: 20170125
  Transmission Date: 20170428
  Serious: Yes (Other)
  Sender: FDA-Public Use
  Company Number: US-AMGEN-USASL2016146093

PATIENT
  Age: 62 Year
  Sex: Female

DRUGS (1)
  1. NPLATE [Suspect]
     Active Substance: ROMIPLOSTIM
     Indication: IMMUNE THROMBOCYTOPENIC PURPURA
     Dosage: 200 OR 250 MUG, Q2WK
     Route: 065

REACTIONS (10)
  - Cardiomyopathy [Unknown]
  - Poor quality sleep [Unknown]
  - Feeling hot [Unknown]
  - Paraesthesia [Recovering/Resolving]
  - Myalgia [Recovering/Resolving]
  - Injection site pain [Unknown]
  - Hypoaesthesia [Recovering/Resolving]
  - Alopecia [Unknown]
  - Contusion [Unknown]
  - Platelet count abnormal [Unknown]

NARRATIVE: CASE EVENT DATE: 201612
